FAERS Safety Report 22772605 (Version 4)
Quarter: 2023Q4

REPORT INFORMATION
  Report Type: Report from Study
  Country: US (occurrence: US)
  Receive Date: 20230801
  Receipt Date: 20231125
  Transmission Date: 20240110
  Serious: Yes (Other)
  Sender: FDA-Public Use
  Company Number: US-002147023-NVSC2023US168113

PATIENT
  Age: 64 Year
  Sex: Male

DRUGS (2)
  1. ENTRESTO [Suspect]
     Active Substance: SACUBITRIL\VALSARTAN
     Indication: Product used for unknown indication
     Dosage: 1 DOSAGE FORM, BID (49/51 MG)
     Route: 065
     Dates: start: 202301
  2. ENTRESTO [Suspect]
     Active Substance: SACUBITRIL\VALSARTAN
     Dosage: 0.5 DOSAGE FORM (24/26 MG)
     Route: 065

REACTIONS (11)
  - Rectal haemorrhage [Recovered/Resolved]
  - Dizziness [Recovered/Resolved]
  - Anal fissure [Unknown]
  - Proctalgia [Recovered/Resolved]
  - Bowel movement irregularity [Unknown]
  - Polyp [Recovered/Resolved]
  - Haemorrhoidal haemorrhage [Unknown]
  - Back pain [Unknown]
  - Hypotension [Recovered/Resolved]
  - Product dose omission issue [Recovering/Resolving]
  - Wrong technique in product usage process [Not Recovered/Not Resolved]

NARRATIVE: CASE EVENT DATE: 20230101
